FAERS Safety Report 11292180 (Version 1)
Quarter: 2015Q3

REPORT INFORMATION
  Report Type: Spontaneous
  Country: US (occurrence: None)
  Receive Date: 20150721
  Receipt Date: 20150721
  Transmission Date: 20151125
  Serious: Yes (Other)
  Sender: FDA-Public Use
  Company Number: None

PATIENT
  Age: 44 Year
  Sex: Female

DRUGS (2)
  1. CRINONE [Suspect]
     Active Substance: PROGESTERONE
     Indication: INFERTILITY
     Dosage: 1 APPLICATION
     Route: 067
     Dates: start: 20140623
  2. LEUPROLIDE [Suspect]
     Active Substance: LEUPROLIDE
     Indication: INFERTILITY
     Route: 058
     Dates: start: 201507

REACTIONS (2)
  - Headache [None]
  - Inadequate analgesia [None]

NARRATIVE: CASE EVENT DATE: 20150720
